FAERS Safety Report 11574951 (Version 1)
Quarter: 2015Q3

REPORT INFORMATION
  Report Type: Spontaneous
  Country: US (occurrence: US)
  Receive Date: 20150930
  Receipt Date: 20150930
  Transmission Date: 20151125
  Serious: No
  Sender: FDA-Public Use
  Company Number: US-SUN PHARMACEUTICAL INDUSTRIES LTD-2014US-86454

PATIENT

DRUGS (4)
  1. LORATADINE. [Suspect]
     Active Substance: LORATADINE
     Indication: OROPHARYNGEAL PAIN
     Dosage: 2 DF, BID
     Route: 065
  2. LORATADINE. [Suspect]
     Active Substance: LORATADINE
     Indication: NASOPHARYNGITIS
  3. LORATADINE. [Suspect]
     Active Substance: LORATADINE
     Indication: NASAL CONGESTION
  4. LORATADINE. [Suspect]
     Active Substance: LORATADINE
     Indication: NASAL CONGESTION

REACTIONS (1)
  - Accidental overdose [Unknown]
